FAERS Safety Report 8917451 (Version 2)
Quarter: 2012Q4

REPORT INFORMATION
  Report Type: 
  Country: CN (occurrence: CN)
  Receive Date: 20121120
  Receipt Date: 20121123
  Transmission Date: 20130627
  Serious: Yes (Other)
  Sender: FDA-Public Use
  Company Number: CN-PFIZER INC-2012287281

PATIENT
  Sex: Male

DRUGS (1)
  1. NORVASC [Suspect]
     Indication: HYPERTENSION
     Dosage: 5 mg, once daily
     Route: 048

REACTIONS (2)
  - Prostate cancer [Not Recovered/Not Resolved]
  - Blood pressure inadequately controlled [Recovered/Resolved]
